FAERS Safety Report 5492476-6 (Version None)
Quarter: 2007Q4

REPORT INFORMATION
  Report Type: 
  Country: None (occurrence: None)
  Receive Date: 20071015
  Receipt Date: 20070730
  Transmission Date: 20080405
  Serious: No
  Sender: FDA-Public Use
  Company Number: 2007SP002674

PATIENT
  Age: 53 Year
  Sex: Female
  Weight: 77.1115 kg

DRUGS (3)
  1. LUNESTA [Suspect]
     Indication: INSOMNIA
     Dosage: 3 MG;PRN;ORAL, 6 MG;1X;ORAL
     Route: 048
     Dates: start: 20070501
  2. LUNESTA [Suspect]
     Indication: INSOMNIA
     Dosage: 3 MG;PRN;ORAL, 6 MG;1X;ORAL
     Route: 048
     Dates: start: 20070730
  3. MICARDIS [Concomitant]

REACTIONS (3)
  - CONFUSIONAL STATE [None]
  - DIPLOPIA [None]
  - MEDICATION ERROR [None]
